FAERS Safety Report 9854266 (Version 1)
Quarter: 2014Q1

REPORT INFORMATION
  Report Type: Report from Study
  Country: US (occurrence: US)
  Receive Date: 20140130
  Receipt Date: 20140130
  Transmission Date: 20141002
  Serious: Yes (Hospitalization, Other)
  Sender: FDA-Public Use
  Company Number: US-ROCHE-1339277

PATIENT
  Sex: Male
  Weight: 149.37 kg

DRUGS (9)
  1. NUTROPIN AQ [Suspect]
     Indication: HYPOPITUITARISM
     Route: 058
     Dates: start: 2010
  2. PREDNISONE [Concomitant]
     Dosage: QAM, Q@1600
     Route: 048
     Dates: start: 2009
  3. PREDNISONE [Concomitant]
     Dosage: QD @ 1600
     Route: 048
     Dates: start: 2009
  4. HYDROCHLOROTHIAZIDE [Concomitant]
     Indication: HYPERTENSION
     Dosage: QAM
     Route: 048
  5. LUVOX [Concomitant]
  6. LEVOTHYROXINE [Concomitant]
  7. GEODON (UNITED STATES) [Concomitant]
  8. CLONIDINE [Concomitant]
  9. XANAX [Concomitant]

REACTIONS (7)
  - Influenza [Unknown]
  - Depression [Unknown]
  - Fatigue [Unknown]
  - Nausea [Unknown]
  - Anaemia [Unknown]
  - Aspartate aminotransferase increased [Unknown]
  - Alanine aminotransferase increased [Unknown]
